FAERS Safety Report 15362215 (Version 2)
Quarter: 2018Q4

REPORT INFORMATION
  Report Type: Spontaneous
  Country: US (occurrence: US)
  Receive Date: 20180907
  Receipt Date: 20181003
  Transmission Date: 20190204
  Serious: Yes (Hospitalization)
  Sender: FDA-Public Use
  Company Number: US-CELGENEUS-USA-20180901400

PATIENT
  Age: 67 Year
  Sex: Female
  Weight: 77.7 kg

DRUGS (4)
  1. ABRAXANE [Suspect]
     Active Substance: PACLITAXEL
     Indication: ENDOMETRIAL CANCER
     Dosage: 80 MILLIGRAM/SQ. METER
     Route: 042
     Dates: start: 20180618, end: 20180813
  2. CARBOPLATIN. [Suspect]
     Active Substance: CARBOPLATIN
     Indication: ENDOMETRIAL CANCER
     Dosage: 5 AUC
     Route: 042
  3. AZD 9150 [Suspect]
     Active Substance: AZD-9150
     Indication: ENDOMETRIAL CANCER
     Dosage: 200 MILLIGRAM
     Route: 042
     Dates: start: 20180618, end: 20180813
  4. MEDI4736 (DURVALUMAB) [Suspect]
     Active Substance: DURVALUMAB
     Indication: ENDOMETRIAL CANCER
     Dosage: 1500 MILLIGRAM
     Route: 042
     Dates: start: 20180625, end: 20180813

REACTIONS (1)
  - Pneumonia [Recovered/Resolved]

NARRATIVE: CASE EVENT DATE: 20180826
